FAERS Safety Report 20716815 (Version 4)
Quarter: 2022Q2

REPORT INFORMATION
  Report Type: Spontaneous
  Country: US (occurrence: US)
  Receive Date: 20220416
  Receipt Date: 20220603
  Transmission Date: 20220721
  Serious: Yes (Hospitalization, Other)
  Sender: FDA-Public Use
  Company Number: US-BRISTOL-MYERS SQUIBB COMPANY-2022-019711

PATIENT
  Age: 93 Year
  Sex: Female

DRUGS (2)
  1. REVLIMID [Suspect]
     Active Substance: LENALIDOMIDE
     Indication: Diffuse large B-cell lymphoma
     Dosage: FREQ: FOR 21 DAYS ON AND 7 DAYS OFF.
     Route: 048
     Dates: start: 20220207
  2. REVLIMID [Suspect]
     Active Substance: LENALIDOMIDE
     Dosage: TAKING 14 DAYS AND 14 DAYS OFF
     Route: 048
     Dates: start: 2022

REACTIONS (7)
  - Syncope [Not Recovered/Not Resolved]
  - Rash [Recovered/Resolved]
  - Insomnia [Not Recovered/Not Resolved]
  - Nausea [Recovered/Resolved]
  - Vomiting [Recovered/Resolved]
  - Off label use [Unknown]
  - Intentional product use issue [Unknown]

NARRATIVE: CASE EVENT DATE: 20220101
